FAERS Safety Report 13409232 (Version 4)
Quarter: 2023Q4

REPORT INFORMATION
  Report Type: Spontaneous
  Country: US (occurrence: US)
  Receive Date: 20170406
  Receipt Date: 20231017
  Transmission Date: 20240110
  Serious: No
  Sender: FDA-Public Use
  Company Number: US-JNJFOC-20161009043

PATIENT
  Age: 24 Year
  Sex: Male

DRUGS (2)
  1. RISPERDAL [Suspect]
     Active Substance: RISPERIDONE
     Indication: Bipolar disorder
     Route: 048
     Dates: start: 19970721
  2. RISPERDAL [Suspect]
     Active Substance: RISPERIDONE
     Indication: Agitation
     Dosage: VARYING DOSE OF 0.5 MG, 1.0 MG TO 2.0 MG
     Route: 048
     Dates: start: 19970728, end: 19971107

REACTIONS (3)
  - Gynaecomastia [Unknown]
  - Weight increased [Unknown]
  - Emotional distress [Unknown]

NARRATIVE: CASE EVENT DATE: 20140609
